FAERS Safety Report 5919422-2 (Version None)
Quarter: 2008Q4

REPORT INFORMATION
  Report Type: 
  Country: None (occurrence: None)
  Receive Date: 20081015
  Receipt Date: 20081008
  Transmission Date: 20090506
  Serious: Yes (Congenital Anomaly)
  Sender: FDA-Public Use
  Company Number: PHBS2008IL05998

PATIENT

DRUGS (5)
  1. DICLOFENAC SODIUM [Suspect]
     Route: 064
  2. OXAZEPAM [Suspect]
     Route: 064
  3. NIFEDIPINE [Suspect]
     Route: 064
  4. ATENOLOL [Suspect]
     Route: 064
  5. PAROXETINE HCL [Suspect]

REACTIONS (5)
  - ATRIAL SEPTAL DEFECT [None]
  - COARCTATION OF THE AORTA [None]
  - DRUG EXPOSURE DURING PREGNANCY [None]
  - SURGERY [None]
  - VENTRICULAR SEPTAL DEFECT [None]
